FAERS Safety Report 7205627-X (Version None)
Quarter: 2010Q4

REPORT INFORMATION
  Report Type: 
  Country: None (occurrence: None)
  Receive Date: 20101231
  Receipt Date: 20101229
  Transmission Date: 20110411
  Serious: Yes (Other)
  Sender: FDA-Public Use
  Company Number: US-PFIZER INC-2010181817

PATIENT

DRUGS (1)
  1. CELEBREX [Suspect]

REACTIONS (1)
  - RENAL FAILURE [None]
